FAERS Safety Report 26166179 (Version 1)
Quarter: 2025Q4

REPORT INFORMATION
  Report Type: Report from Study
  Country: CN (occurrence: CN)
  Receive Date: 20251216
  Receipt Date: 20251216
  Transmission Date: 20260118
  Serious: Yes (Other)
  Sender: NUVATION BIO
  Company Number: CN-NUVATION BIO INC.-2025NUV000365

PATIENT
  Age: 62 Year
  Sex: Female

DRUGS (1)
  1. TALETRECTINIB ADIPATE [Suspect]
     Active Substance: TALETRECTINIB ADIPATE
     Indication: Lung neoplasm malignant
     Dosage: 600 MILLIGRAM, QD
     Dates: start: 20251002

REACTIONS (3)
  - Syncope [Unknown]
  - Vomiting [Unknown]
  - Diarrhoea [Unknown]
